FAERS Safety Report 25068201 (Version 1)
Quarter: 2025Q1

REPORT INFORMATION
  Report Type: Spontaneous
  Country: US (occurrence: None)
  Receive Date: 20250311
  Receipt Date: 20250311
  Transmission Date: 20250408
  Serious: Yes (Hospitalization, Other)
  Sender: FDA-CTU
  Company Number: None

PATIENT
  Age: 59 Year
  Sex: Female
  Weight: 86.4 kg

DRUGS (7)
  1. TIRZEPATIDE [Suspect]
     Active Substance: TIRZEPATIDE
     Indication: Weight decreased
     Dates: start: 20250104, end: 20250222
  2. BUPROPION [Concomitant]
     Active Substance: BUPROPION
  3. PROZAC [Concomitant]
     Active Substance: FLUOXETINE HYDROCHLORIDE
  4. XANAX [Concomitant]
     Active Substance: ALPRAZOLAM
  5. BACLOFEN [Concomitant]
     Active Substance: BACLOFEN
  6. CELECOXIB [Concomitant]
     Active Substance: CELECOXIB
  7. HERBALS\WITHANIA SOMNIFERA ROOT [Concomitant]
     Active Substance: HERBALS\WITHANIA SOMNIFERA ROOT

REACTIONS (11)
  - Loss of consciousness [None]
  - Fall [None]
  - Contusion [None]
  - Head injury [None]
  - Skin swelling [None]
  - Migraine [None]
  - Hyperacusis [None]
  - Concussion [None]
  - Withdrawal syndrome [None]
  - Gastrointestinal disorder [None]
  - Dizziness [None]

NARRATIVE: CASE EVENT DATE: 20250228
